FAERS Safety Report 8345423-3 (Version None)
Quarter: 2012Q2

REPORT INFORMATION
  Report Type: 
  Country: None (occurrence: None)
  Receive Date: 20120508
  Receipt Date: 20120427
  Transmission Date: 20120825
  Serious: Yes (Disabling)
  Sender: FDA-Public Use
  Company Number: FR-FRI-1000030262

PATIENT
  Sex: Male

DRUGS (5)
  1. MEMANTINE HCL [Suspect]
     Indication: DEMENTIA ALZHEIMER'S TYPE
     Dosage: 20 MG
     Route: 048
     Dates: end: 20111223
  2. CITALOPRAM HYDROBROMIDE [Suspect]
     Route: 048
     Dates: end: 20111223
  3. MEMANTINE HCL [Suspect]
     Route: 048
     Dates: start: 20120105, end: 20120119
  4. DIGOXIN [Concomitant]
  5. PREVISCAN [Suspect]
     Indication: ARRHYTHMIA
     Dosage: 15MG TO 10MG DAILY ALTERNATIVELY
     Dates: end: 20111223

REACTIONS (1)
  - CEREBRAL HAEMATOMA [None]
